FAERS Safety Report 6892545-X (Version None)
Quarter: 2010Q3

REPORT INFORMATION
  Report Type: 
  Country: None (occurrence: None)
  Receive Date: 20100731
  Receipt Date: 20080807
  Transmission Date: 20110219
  Serious: No
  Sender: FDA-Public Use
  Company Number: US-PFIZER INC-2008054167

PATIENT
  Sex: Female
  Weight: 72.57 kg

DRUGS (1)
  1. NEURONTIN [Suspect]
     Indication: PAIN IN EXTREMITY
     Dates: start: 20070701, end: 20071101

REACTIONS (1)
  - DRUG WITHDRAWAL SYNDROME [None]
